FAERS Safety Report 7494942-0 (Version None)
Quarter: 2011Q2

REPORT INFORMATION
  Report Type: 
  Country: None (occurrence: None)
  Receive Date: 20110520
  Receipt Date: 20110509
  Transmission Date: 20111010
  Serious: Yes (Other)
  Sender: FDA-Public Use
  Company Number: DE-UCBSA-032554

PATIENT
  Age: 4 Year
  Sex: Male

DRUGS (3)
  1. DIAZEPAM [Concomitant]
  2. LIORESAL [Concomitant]
  3. KEPPRA [Suspect]
     Route: 048
     Dates: start: 20090101

REACTIONS (2)
  - DRUG INEFFECTIVE [None]
  - CONVULSION [None]
